FAERS Safety Report 7657046-X (Version None)
Quarter: 2011Q3

REPORT INFORMATION
  Report Type: 
  Country: None (occurrence: None)
  Receive Date: 20110804
  Receipt Date: 20110729
  Transmission Date: 20111222
  Serious: Yes (Hospitalization)
  Sender: FDA-Public Use
  Company Number: JP-B.I. PHARMACEUTICALS,INC./RIDGEFIELD-2011-RU-00028BP

PATIENT
  Sex: Male
  Weight: 68.5 kg

DRUGS (11)
  1. OXYGEN INHALATION THERAPY [Concomitant]
     Indication: INTERSTITIAL LUNG DISEASE
     Route: 045
     Dates: start: 20110430, end: 20110519
  2. LASIX [Concomitant]
     Indication: PULMONARY CONGESTION
     Dosage: 20 MG
     Route: 042
     Dates: start: 20110430, end: 20110510
  3. LEVOFLOXACIN [Concomitant]
     Indication: INTERSTITIAL LUNG DISEASE
     Dosage: 400 MG
     Route: 048
     Dates: start: 20110511, end: 20110513
  4. ISOTONIC SODIUM CHLORIDE SOLUTION [Concomitant]
     Dosage: 200 ML
     Route: 042
     Dates: start: 20110501, end: 20110506
  5. MUCODYNE [Concomitant]
     Indication: INTERSTITIAL LUNG DISEASE
     Dosage: 1500 MG
     Route: 048
     Dates: start: 20110509, end: 20110513
  6. BI 1356 [Suspect]
     Indication: TYPE 2 DIABETES MELLITUS
     Dosage: 5 MG
     Route: 048
     Dates: start: 20110331, end: 20110512
  7. LIASOPHIN [Concomitant]
     Indication: INTERSTITIAL LUNG DISEASE
     Dosage: 2 G
     Route: 042
     Dates: start: 20110430, end: 20110430
  8. ISOTONIC SODIUM CHLORIDE SOLUTION [Concomitant]
     Indication: INTERSTITIAL LUNG DISEASE
     Dosage: 100 ML
     Route: 042
     Dates: start: 20110430, end: 20110430
  9. LIASOPHIN [Concomitant]
     Dosage: 4 G
     Route: 042
     Dates: start: 20110501, end: 20110506
  10. BICARBON [Concomitant]
     Indication: INTERSTITIAL LUNG DISEASE
     Dosage: 500 ML
     Route: 042
     Dates: start: 20110430, end: 20110510
  11. ZOSYN [Concomitant]
     Indication: INTERSTITIAL LUNG DISEASE
     Dosage: 13.5 G
     Route: 042
     Dates: start: 20110507, end: 20110510

REACTIONS (1)
  - INTERSTITIAL LUNG DISEASE [None]
